FAERS Safety Report 6380626-9 (Version None)
Quarter: 2009Q3

REPORT INFORMATION
  Report Type: 
  Country: None (occurrence: None)
  Receive Date: 20090929
  Receipt Date: 20090919
  Transmission Date: 20100115
  Serious: No
  Sender: FDA-Public Use
  Company Number: US-B.I. PHARMACEUTICALS,INC./RIDGEFIELD-2009-BP-11085BP

PATIENT
  Sex: Female

DRUGS (2)
  1. ZANTAC 150 [Suspect]
     Indication: DYSPEPSIA
     Dosage: 150 MG
     Route: 048
  2. CEFUROXIME [Concomitant]
     Indication: CELLULITIS
     Dosage: 1500 MG
     Route: 048
     Dates: start: 20090914

REACTIONS (1)
  - DYSPEPSIA [None]
